FAERS Safety Report 21990723 (Version 2)
Quarter: 2024Q1

REPORT INFORMATION
  Report Type: Spontaneous
  Country: US (occurrence: US)
  Receive Date: 20230214
  Receipt Date: 20240206
  Transmission Date: 20240410
  Serious: No
  Sender: FDA-Public Use
  Company Number: US-BoehringerIngelheim-2023-BI-218640

PATIENT
  Age: 79 Year
  Sex: Female

DRUGS (1)
  1. LINAGLIPTIN [Suspect]
     Active Substance: LINAGLIPTIN
     Indication: Diabetes mellitus
     Route: 048
     Dates: start: 20190323

REACTIONS (4)
  - Asthenia [Unknown]
  - Fatigue [Unknown]
  - Mobility decreased [Not Recovered/Not Resolved]
  - Feeling abnormal [Not Recovered/Not Resolved]

NARRATIVE: CASE EVENT DATE: 20230213
